FAERS Safety Report 8358079-0 (Version None)
Quarter: 2012Q2

REPORT INFORMATION
  Report Type: 
  Country: None (occurrence: None)
  Receive Date: 20120514
  Receipt Date: 20120501
  Transmission Date: 20120825
  Serious: Yes (Congenital Anomaly)
  Sender: FDA-Public Use
  Company Number: DE-MYLANLABS-2012S1009397

PATIENT

DRUGS (4)
  1. CYCLOSPORINE [Concomitant]
     Route: 064
  2. MYCOPHENOLATE MOFETIL [Suspect]
     Indication: LIVER TRANSPLANT
     Dosage: 1 G/DAY
     Route: 064
  3. PREDNISONE [Concomitant]
     Route: 064
  4. URSODIOL [Concomitant]
     Route: 064

REACTIONS (4)
  - BRAIN MALFORMATION [None]
  - MATERNAL EXPOSURE DURING PREGNANCY [None]
  - PREMATURE BABY [None]
  - ATRIAL SEPTAL DEFECT [None]
